FAERS Safety Report 5581361-7 (Version None)
Quarter: 2007Q4

REPORT INFORMATION
  Report Type: 
  Country: None (occurrence: None)
  Receive Date: 20071231
  Receipt Date: 20071217
  Transmission Date: 20080405
  Serious: Yes (Other)
  Sender: FDA-Public Use
  Company Number: 2007EN000304

PATIENT
  Age: 45 Year
  Sex: Male
  Weight: 89.3586 kg

DRUGS (10)
  1. OPANA ER [Suspect]
     Indication: BACK PAIN
     Dosage: 20 MG;Q12;PO, 10 MG;BID;PO
     Route: 048
     Dates: start: 20070803, end: 20071029
  2. OPANA ER [Suspect]
     Indication: PAIN IN EXTREMITY
     Dosage: 20 MG;Q12;PO, 10 MG;BID;PO
     Route: 048
     Dates: start: 20070803, end: 20071029
  3. OPANA ER [Suspect]
     Indication: BACK PAIN
     Dosage: 20 MG;Q12;PO, 10 MG;BID;PO
     Route: 048
     Dates: start: 20071029, end: 20071101
  4. OPANA ER [Suspect]
     Indication: PAIN IN EXTREMITY
     Dosage: 20 MG;Q12;PO, 10 MG;BID;PO
     Route: 048
     Dates: start: 20071029, end: 20071101
  5. ENDOCET (OXYCOCET) [Suspect]
     Indication: BACK PAIN
     Dosage: QID;PO
     Route: 048
     Dates: end: 20071029
  6. ENDOCET (OXYCOCET) [Suspect]
     Indication: PAIN IN EXTREMITY
     Dosage: QID;PO
     Route: 048
     Dates: end: 20071029
  7. OPANA [Suspect]
     Indication: BACK PAIN
     Dosage: 10 MG; PRN;
     Dates: start: 20070731, end: 20071101
  8. OPANA [Suspect]
     Indication: PAIN IN EXTREMITY
     Dosage: 10 MG; PRN;
     Dates: start: 20070731, end: 20071101
  9. RITALIN [Suspect]
     Indication: DRUG USE FOR UNKNOWN INDICATION
     Dosage: 60 MG;QD;
     Dates: end: 20071101
  10. PERCOCET /00446701/ (TYLOX /00446701/) [Concomitant]
     Indication: BREAKTHROUGH PAIN
     Dosage: 5 MG;PRN;PO
     Route: 048
     Dates: start: 20071029

REACTIONS (6)
  - ALTERED STATE OF CONSCIOUSNESS [None]
  - ASTHENIA [None]
  - CONVULSION [None]
  - GAIT DISTURBANCE [None]
  - MOTOR DYSFUNCTION [None]
  - PAIN [None]
